FAERS Safety Report 5040314-8 (Version None)
Quarter: 2006Q2

REPORT INFORMATION
  Report Type: 
  Country: None (occurrence: None)
  Receive Date: 20060630
  Receipt Date: 20060430
  Transmission Date: 20061013
  Serious: Yes (Other)
  Sender: FDA-Public Use
  Company Number: US-BRISTOL-MYERS SQUIBB COMPANY-13361902

PATIENT
  Age: 66 Year
  Sex: Female

DRUGS (6)
  1. ORENCIA [Suspect]
     Indication: RHEUMATOID ARTHRITIS
     Route: 042
     Dates: start: 20060327
  2. PREDNISONE [Concomitant]
  3. METHOTREXATE [Concomitant]
  4. DIOVAN [Concomitant]
  5. CALCIUM GLUCONATE [Concomitant]
  6. ACTONEL [Concomitant]

REACTIONS (1)
  - RHEUMATOID ARTHRITIS [None]
